FAERS Safety Report 13035018 (Version 1)
Quarter: 2016Q4

REPORT INFORMATION
  Report Type: Spontaneous
  Country: MY (occurrence: MY)
  Receive Date: 20161216
  Receipt Date: 20161216
  Transmission Date: 20170207
  Serious: Yes (Hospitalization)
  Sender: FDA-Public Use
  Company Number: MY-ELI_LILLY_AND_COMPANY-MY201612003914

PATIENT
  Age: 59 Year

DRUGS (5)
  1. CHLOR-PROMANYL [Concomitant]
     Dosage: UNK, UNKNOWN
     Route: 065
  2. TRIHEXYPHENIDYL [Concomitant]
     Active Substance: TRIHEXYPHENIDYL
     Dosage: UNK, UNKNOWN
     Route: 065
  3. OLANZAPINE. [Suspect]
     Active Substance: OLANZAPINE
     Indication: PRODUCT USED FOR UNKNOWN INDICATION
     Dosage: UNK, UNKNOWN
     Route: 065
  4. CLOZAPINE. [Concomitant]
     Active Substance: CLOZAPINE
     Dosage: UNK, UNKNOWN
     Route: 065
  5. CLONAZEPAM. [Concomitant]
     Active Substance: CLONAZEPAM
     Dosage: UNK, UNKNOWN
     Route: 065

REACTIONS (12)
  - Subarachnoid haemorrhage [Unknown]
  - Parkinsonism [Unknown]
  - Respiratory depression [Unknown]
  - Hepatic enzyme abnormal [Unknown]
  - Aggression [Unknown]
  - Lethargy [Unknown]
  - Confusional state [Unknown]
  - Disorientation [Unknown]
  - Somnolence [Unknown]
  - Catatonia [Unknown]
  - Fall [Unknown]
  - Head injury [Unknown]
